FAERS Safety Report 4816218-X (Version None)
Quarter: 2005Q4

REPORT INFORMATION
  Report Type: 
  Country: None (occurrence: None)
  Receive Date: 20051026
  Receipt Date: 20051020
  Transmission Date: 20060501
  Serious: Yes (Hospitalization)
  Sender: FDA-Public Use
  Company Number: TCI2005A03425

PATIENT
  Age: 65 Year
  Sex: Female

DRUGS (5)
  1. LANSOPRAZOLE [Suspect]
     Indication: ULCER
     Dosage: 30 MG (30  MG,1 IN 1 D) ORAL
     Route: 048
     Dates: start: 20050721, end: 20050722
  2. DASEN (SERRAPEPTASE) (TABLETS) [Suspect]
     Dosage: 30 MG (10 MG, 3 IN 1 D) PER ORAL
     Route: 048
     Dates: start: 20050615, end: 20050701
  3. ULCHYONE (CIMETIDINE) (TABLETS) [Suspect]
     Dosage: 400 MG (200 MG, 2 IN 1 D) PER ORAL
     Route: 048
     Dates: start: 20050721, end: 20050722
  4. MIRIDACIN (PROGLUMETACIN) (TABLETS) [Suspect]
     Dosage: (3 IN 1 D) PER ORAL
     Route: 048
     Dates: start: 20050615, end: 20050701
  5. SELBEX (TEPRENONE) (CAPSULES) [Suspect]
     Dosage: 150 MG (50 MG,3 IN 1 D) PER ORAL
     Route: 048
     Dates: start: 20050615, end: 20050701

REACTIONS (14)
  - ABDOMINAL PAIN UPPER [None]
  - ACUTE LYMPHOCYTIC LEUKAEMIA [None]
  - ALANINE AMINOTRANSFERASE INCREASED [None]
  - ASPARTATE AMINOTRANSFERASE INCREASED [None]
  - BLOOD ALKALINE PHOSPHATASE INCREASED [None]
  - BLOOD LACTATE DEHYDROGENASE INCREASED [None]
  - BONE MARROW FAILURE [None]
  - C-REACTIVE PROTEIN INCREASED [None]
  - ERYTHROBLASTOSIS [None]
  - GAMMA-GLUTAMYLTRANSFERASE INCREASED [None]
  - HEPATIC FUNCTION ABNORMAL [None]
  - PANCYTOPENIA [None]
  - PYREXIA [None]
  - RESPIRATORY DISORDER [None]
